FAERS Safety Report 16487205 (Version 1)
Quarter: 2019Q2

REPORT INFORMATION
  Report Type: Spontaneous
  Country: US (occurrence: US)
  Receive Date: 20190627
  Receipt Date: 20190627
  Transmission Date: 20190711
  Serious: Yes (Other)
  Sender: FDA-Public Use
  Company Number: US-MYLANLABS-2019M1059346

PATIENT
  Age: 74 Year
  Sex: Female

DRUGS (3)
  1. LATANOPROST. [Suspect]
     Active Substance: LATANOPROST
     Indication: OCULAR HYPERTENSION
     Dosage: UNK
     Route: 061
  2. BRIMONIDINE [Suspect]
     Active Substance: BRIMONIDINE TARTRATE
     Indication: OCULAR HYPERTENSION
     Route: 061
  3. DORZOLAMIDE [Suspect]
     Active Substance: DORZOLAMIDE
     Indication: OCULAR HYPERTENSION
     Route: 061

REACTIONS (1)
  - Endocrine ophthalmopathy [Recovered/Resolved]
